FAERS Safety Report 5491241-3 (Version None)
Quarter: 2007Q4

REPORT INFORMATION
  Report Type: 
  Country: None (occurrence: None)
  Receive Date: 20071019
  Receipt Date: 20071012
  Transmission Date: 20080405
  Serious: Yes (Hospitalization)
  Sender: FDA-Public Use
  Company Number: JP-GENENTECH-249390

PATIENT
  Sex: Female

DRUGS (12)
  1. RITUXAN [Suspect]
     Indication: NON-HODGKIN'S LYMPHOMA
     Route: 042
     Dates: start: 20051207, end: 20060126
  2. PLANTAGO MAJOR [Concomitant]
     Indication: DRUG USE FOR UNKNOWN INDICATION
     Dosage: 6 ML, UNK
     Route: 048
     Dates: end: 20051219
  3. MEDICON [Concomitant]
     Indication: DRUG USE FOR UNKNOWN INDICATION
     Dosage: 24 ML, UNK
     Route: 048
     Dates: end: 20051219
  4. SENEGA [Concomitant]
     Indication: DRUG USE FOR UNKNOWN INDICATION
     Dosage: 6 ML, UNK
     Route: 048
     Dates: end: 20051219
  5. CINAL [Concomitant]
     Indication: DRUG USE FOR UNKNOWN INDICATION
     Dosage: 3 G, UNK
     Route: 048
  6. ALLOPURINOL [Concomitant]
     Indication: DRUG USE FOR UNKNOWN INDICATION
     Dosage: 300 MG, UNK
     Route: 048
     Dates: start: 20051207, end: 20051213
  7. EPADEL [Concomitant]
     Indication: DRUG USE FOR UNKNOWN INDICATION
     Dosage: 1200 MG, UNK
     Route: 048
  8. METHYCOBAL [Concomitant]
     Indication: DRUG USE FOR UNKNOWN INDICATION
     Dosage: 750 A?L, UNK
     Route: 048
  9. FAMOTIDINE [Concomitant]
     Indication: DRUG USE FOR UNKNOWN INDICATION
     Dosage: 40 MG, UNK
     Route: 048
  10. SELBEX [Concomitant]
     Indication: DRUG USE FOR UNKNOWN INDICATION
     Dosage: 150 MG, UNK
     Route: 048
  11. FOSAMAX [Concomitant]
     Indication: DRUG USE FOR UNKNOWN INDICATION
     Dosage: 5 MG, UNK
     Route: 048
  12. TOCOPHEROL CONCENTRATE CAP [Concomitant]
     Indication: DRUG USE FOR UNKNOWN INDICATION
     Dosage: 300 MG, UNK
     Route: 048

REACTIONS (1)
  - LUMBAR VERTEBRAL FRACTURE [None]
